FAERS Safety Report 8908138 (Version 2)
Quarter: 2012Q4

REPORT INFORMATION
  Report Type: 
  Country: US (occurrence: US)
  Receive Date: 20121113
  Receipt Date: 20121226
  Transmission Date: 20130627
  Serious: No
  Sender: FDA-Public Use
  Company Number: US-PFIZER INC-2012283106

PATIENT
  Age: 32 Year
  Sex: Male
  Weight: 64 kg

DRUGS (4)
  1. PRISTIQ [Suspect]
     Indication: DEPRESSION
     Dosage: 50 mg, 1x/day
     Route: 048
     Dates: start: 201108
  2. PRISTIQ [Suspect]
     Indication: ANXIETY
     Dosage: 50 mg, 1x/day
     Route: 048
     Dates: start: 20121012
  3. PRISTIQ [Suspect]
     Dosage: 50 mg, 1x/day
     Route: 048
     Dates: start: 20121107
  4. KLONOPIN [Concomitant]
     Indication: ANXIETY
     Dosage: 0.5 mg, as needed

REACTIONS (7)
  - Anxiety [Not Recovered/Not Resolved]
  - Insomnia [Not Recovered/Not Resolved]
  - Confusional state [Not Recovered/Not Resolved]
  - Electrolyte imbalance [Not Recovered/Not Resolved]
  - Fatigue [Not Recovered/Not Resolved]
  - Nausea [Not Recovered/Not Resolved]
  - Constipation [Not Recovered/Not Resolved]
